FAERS Safety Report 21166308 (Version 1)
Quarter: 2022Q3

REPORT INFORMATION
  Report Type: Spontaneous
  Country: US (occurrence: None)
  Receive Date: 20220802
  Receipt Date: 20220802
  Transmission Date: 20221026
  Serious: Yes (Hospitalization, Disabling)
  Sender: FDA-Public Use
  Company Number: None

PATIENT
  Age: 35 Year
  Sex: Female

DRUGS (1)
  1. MAGNESIUM CITRATE SALINE LAXATIVE [Suspect]
     Active Substance: MAGNESIUM CITRATE
     Indication: Constipation
     Dosage: OTHER QUANTITY : 1 OUNCE(S);?OTHER FREQUENCY : 1 DOSE (10 OUNCES);?
     Route: 048
     Dates: start: 20220724, end: 20220724

REACTIONS (10)
  - Diarrhoea haemorrhagic [None]
  - Vomiting [None]
  - Abdominal pain [None]
  - Dizziness [None]
  - Dizziness [None]
  - Presyncope [None]
  - Malaise [None]
  - Gastric ulcer [None]
  - Large intestine polyp [None]
  - Haemoglobin decreased [None]

NARRATIVE: CASE EVENT DATE: 20220725
